FAERS Safety Report 11983973 (Version 1)
Quarter: 2016Q1

REPORT INFORMATION
  Report Type: Report from Study
  Country: GB (occurrence: GB)
  Receive Date: 20160201
  Receipt Date: 20160201
  Transmission Date: 20160526
  Serious: No
  Sender: FDA-Public Use
  Company Number: GB-JNJFOC-20160117642

PATIENT
  Sex: Female
  Weight: 110 kg

DRUGS (1)
  1. STELARA [Suspect]
     Active Substance: USTEKINUMAB
     Indication: PSORIASIS
     Route: 058
     Dates: start: 20130816

REACTIONS (6)
  - Back pain [Unknown]
  - Abdominal pain lower [Unknown]
  - Influenza like illness [Unknown]
  - Weight increased [Unknown]
  - Cholelithiasis [Unknown]
  - Psoriasis [Unknown]

NARRATIVE: CASE EVENT DATE: 2015
